FAERS Safety Report 12598726 (Version 1)
Quarter: 2016Q3

REPORT INFORMATION
  Report Type: Spontaneous
  Country: US (occurrence: US)
  Receive Date: 20160726
  Receipt Date: 20160726
  Transmission Date: 20161109
  Serious: No
  Sender: FDA-Public Use
  Company Number: US-IMPAX LABORATORIES, INC-2015AMD00132

PATIENT
  Age: 65 Year
  Sex: Male
  Weight: 99.77 kg

DRUGS (5)
  1. ZYRTEC [Concomitant]
     Active Substance: CETIRIZINE HYDROCHLORIDE
  2. UNSPECIFIED CREAM [Concomitant]
     Active Substance: UNSPECIFIED INGREDIENT
  3. ADRENACLICK [Suspect]
     Active Substance: EPINEPHRINE
     Indication: HYPERSENSITIVITY
     Dosage: 0.30 MG, ONCE
     Route: 051
     Dates: start: 20150623, end: 20150623
  4. ADRENACLICK [Suspect]
     Active Substance: EPINEPHRINE
     Indication: HYPERSENSITIVITY
     Dosage: 0.30 MG, ONCE
     Route: 051
     Dates: start: 20150623, end: 20150623
  5. UNSPECIFIED BLOOD PRESSURE MEDICATION [Concomitant]
     Active Substance: UNSPECIFIED INGREDIENT

REACTIONS (1)
  - Drug ineffective [Not Recovered/Not Resolved]

NARRATIVE: CASE EVENT DATE: 20150623
